FAERS Safety Report 16555859 (Version 8)
Quarter: 2020Q4

REPORT INFORMATION
  Report Type: Spontaneous
  Country: BR (occurrence: BR)
  Receive Date: 20190710
  Receipt Date: 20201204
  Transmission Date: 20210113
  Serious: Yes (Hospitalization, Other)
  Sender: FDA-Public Use
  Company Number: BR-GLAXOSMITHKLINE-BR2016GSK106932

PATIENT
  Sex: Female
  Weight: 78 kg

DRUGS (11)
  1. BENLYSTA [Suspect]
     Active Substance: BELIMUMAB
     Indication: SYSTEMIC LUPUS ERYTHEMATOSUS
     Dosage: UNK
     Dates: start: 20151204
  2. PROLIA [Concomitant]
     Active Substance: DENOSUMAB
     Indication: PRODUCT USED FOR UNKNOWN INDICATION
     Dosage: 60 MG, Z
  3. CHOLECALCIFEROL [Concomitant]
     Active Substance: CHOLECALCIFEROL
     Indication: PRODUCT USED FOR UNKNOWN INDICATION
     Dosage: UNK
  4. REUQUINOL (HYDROXYCHLOROQUINE SULFATE) [Concomitant]
     Active Substance: HYDROXYCHLOROQUINE SULFATE
     Indication: PRODUCT USED FOR UNKNOWN INDICATION
     Dosage: UNK
  5. METHOTREXATE. [Concomitant]
     Active Substance: METHOTREXATE
     Indication: PRODUCT USED FOR UNKNOWN INDICATION
     Dosage: 2.5 MG, UNK,8 TABLETS OF 2.5 MG
  6. CALCIUM CARBONATE. [Concomitant]
     Active Substance: CALCIUM CARBONATE
     Indication: PRODUCT USED FOR UNKNOWN INDICATION
     Dosage: UNK
  7. ALENDRONATE [Concomitant]
     Active Substance: ALENDRONATE SODIUM
     Indication: PRODUCT USED FOR UNKNOWN INDICATION
     Dosage: UNK
  8. GABAPENTIN. [Concomitant]
     Active Substance: GABAPENTIN
     Indication: PRODUCT USED FOR UNKNOWN INDICATION
     Dosage: UNK
  9. CODEINE [Concomitant]
     Active Substance: CODEINE
     Indication: PRODUCT USED FOR UNKNOWN INDICATION
     Dosage: UNK
  10. HYDROCHLOROTHIAZIDE. [Concomitant]
     Active Substance: HYDROCHLOROTHIAZIDE
     Indication: PRODUCT USED FOR UNKNOWN INDICATION
     Dosage: UNK
  11. MELOXICAM. [Concomitant]
     Active Substance: MELOXICAM

REACTIONS (17)
  - Femur fracture [Unknown]
  - Abdominal discomfort [Unknown]
  - Circumstance or information capable of leading to medication error [Unknown]
  - Depressed mood [Unknown]
  - Inappropriate schedule of product administration [Unknown]
  - Foot fracture [Unknown]
  - Influenza [Recovered/Resolved]
  - Abdominal pain [Unknown]
  - Product dose omission issue [Unknown]
  - Pleural effusion [Recovered/Resolved]
  - Headache [Unknown]
  - Abdominal hernia [Recovered/Resolved]
  - Lung disorder [Unknown]
  - Sinusitis [Unknown]
  - Pain [Unknown]
  - Joint injury [Unknown]
  - Underdose [Unknown]
